FAERS Safety Report 6612556-9 (Version None)
Quarter: 2010Q1

REPORT INFORMATION
  Report Type: 
  Country: None (occurrence: None)
  Receive Date: 20100303
  Receipt Date: 20100219
  Transmission Date: 20100710
  Serious: Yes (Hospitalization)
  Sender: FDA-Public Use
  Company Number: US-JNJFOC-20100210366

PATIENT
  Age: 3 Year
  Sex: Male
  Weight: 13.6 kg

DRUGS (2)
  1. CHILDREN'S TYLENOL GRAPE SOFT-CHEWS [Suspect]
     Route: 048
  2. CHILDREN'S TYLENOL GRAPE SOFT-CHEWS [Suspect]
     Indication: PYREXIA
     Route: 048

REACTIONS (5)
  - ACCIDENTAL OVERDOSE [None]
  - DIARRHOEA [None]
  - DROOLING [None]
  - HEPATIC ENZYME INCREASED [None]
  - MENTAL STATUS CHANGES [None]
